FAERS Safety Report 9095550 (Version 2)
Quarter: 2013Q1

REPORT INFORMATION
  Report Type: Spontaneous
  Country: DE (occurrence: None)
  Receive Date: 20130123
  Receipt Date: 20130204
  Transmission Date: 20140127
  Serious: Yes (Other)
  Sender: FDA-Public Use
  Company Number: AUR-APL-2013-00865

PATIENT
  Sex: Male
  Weight: 92 kg

DRUGS (6)
  1. MIRTAZAPINE (MIRTAZAPINE) [Suspect]
     Indication: PRODUCT USED FOR UNKNOWN INDICATION
  2. TREDAPTIVE (NICOTINIC ACID W/LAROPIRANT) [Suspect]
     Indication: PRODUCT USED FOR UNKNOWN INDICATION
     Route: 048
  3. EPTADONE (METHADONE HYDROCHLORIDE) [Suspect]
     Indication: DRUG DEPENDENCE
     Route: 048
     Dates: start: 20111001, end: 20121222
  4. ASS [Concomitant]
  5. SIMVASTATIN (SIMVASTATIN) [Concomitant]
  6. CLOPIDOGREL (CLOPIDOGREL) [Concomitant]

REACTIONS (1)
  - Electrocardiogram QT prolonged [None]
